FAERS Safety Report 8436327-6 (Version None)
Quarter: 2012Q2

REPORT INFORMATION
  Report Type: 
  Country: None (occurrence: None)
  Receive Date: 20120614
  Receipt Date: 20120531
  Transmission Date: 20120825
  Serious: Yes (Hospitalization, Other)
  Sender: FDA-Public Use
  Company Number: US-ELI_LILLY_AND_COMPANY-US201204007970

PATIENT
  Age: 60 Year
  Sex: Female
  Weight: 54.875 kg

DRUGS (11)
  1. TUMS                               /00193601/ [Concomitant]
  2. DEXTROAMPHETAMINE [Concomitant]
  3. ASMANEX TWISTHALER [Concomitant]
  4. CYMBALTA [Suspect]
     Dosage: 60 MG, QD
     Dates: end: 20111201
  5. ALBUTEROL [Concomitant]
     Dosage: UNK, PRN
  6. SINGULAIR [Concomitant]
  7. ZANTAC [Concomitant]
  8. ACIPHEX [Concomitant]
  9. CYMBALTA [Suspect]
     Indication: DEPRESSION
     Dosage: 30 MG, QD
     Dates: start: 20110401
  10. XANAX [Concomitant]
  11. METOZOLV [Concomitant]

REACTIONS (41)
  - CHOLECYSTITIS [None]
  - CHROMATURIA [None]
  - JAUNDICE [None]
  - DYSGEUSIA [None]
  - STRESS [None]
  - MOBILITY DECREASED [None]
  - ABDOMINAL PAIN UPPER [None]
  - GASTRITIS [None]
  - FLATULENCE [None]
  - PRURITUS [None]
  - BLOOD BILIRUBIN INCREASED [None]
  - ABDOMINAL DISTENSION [None]
  - ABDOMINAL PAIN [None]
  - APHAGIA [None]
  - HEPATIC FIBROSIS [None]
  - WEIGHT INCREASED [None]
  - VOMITING [None]
  - SKIN ODOUR ABNORMAL [None]
  - MENTAL DISORDER [None]
  - FOCAL NODULAR HYPERPLASIA [None]
  - UPPER-AIRWAY COUGH SYNDROME [None]
  - CHEST PAIN [None]
  - CHOLELITHIASIS [None]
  - ABNORMAL FAECES [None]
  - GASTROINTESTINAL INFLAMMATION [None]
  - BLOOD GLUCOSE INCREASED [None]
  - DYSPNOEA [None]
  - BLOOD UREA INCREASED [None]
  - PANCREATITIS ACUTE [None]
  - HIATUS HERNIA [None]
  - ORAL DISCOMFORT [None]
  - ORAL MUCOSAL BLISTERING [None]
  - INTENTIONAL DRUG MISUSE [None]
  - CHOLESTASIS [None]
  - POLYP COLORECTAL [None]
  - DYSPEPSIA [None]
  - CONSTIPATION [None]
  - NAUSEA [None]
  - DYSPHAGIA [None]
  - HEPATIC CIRRHOSIS [None]
  - PAIN [None]
